FAERS Safety Report 8012762-5 (Version None)
Quarter: 2011Q4

REPORT INFORMATION
  Report Type: 
  Country: None (occurrence: None)
  Receive Date: 20111229
  Receipt Date: 20111219
  Transmission Date: 20120403
  Serious: Yes (Death)
  Sender: FDA-Public Use
  Company Number: US-PFIZER INC-2011309881

PATIENT
  Age: 39 Year
  Sex: Female

DRUGS (3)
  1. ALPRAZOLAM [Suspect]
  2. QUETIAPINE [Suspect]
  3. HYDROCODONE [Suspect]

REACTIONS (3)
  - DEATH [None]
  - RESPIRATORY ARREST [None]
  - CARDIAC ARREST [None]
